FAERS Safety Report 4285413-3 (Version None)
Quarter: 2004Q1

REPORT INFORMATION
  Report Type: 
  Country: None (occurrence: None)
  Receive Date: 20040202
  Receipt Date: 20040116
  Transmission Date: 20041129
  Serious: Yes (Hospitalization)
  Sender: FDA-Public Use
  Company Number: 8004975

PATIENT
  Age: 57 Year
  Sex: Male

DRUGS (3)
  1. KEPPRA [Suspect]
     Indication: MALAISE
     Dosage: 1500 MG PO
     Route: 048
     Dates: start: 20031003, end: 20031011
  2. MYSOLINE [Suspect]
     Indication: ESSENTIAL TREMOR
     Dosage: 250 MG ONCE PO
     Route: 048
     Dates: start: 20031010, end: 20031010
  3. DIOVANE [Concomitant]

REACTIONS (7)
  - AGITATION [None]
  - DRUG INTERACTION POTENTIATION [None]
  - DYSPNOEA [None]
  - HALLUCINATION, AUDITORY [None]
  - HYPERVENTILATION [None]
  - MALAISE [None]
  - PANIC ATTACK [None]
